FAERS Safety Report 17547113 (Version 4)
Quarter: 2020Q3

REPORT INFORMATION
  Report Type: Report from Study
  Country: US (occurrence: US)
  Receive Date: 20200316
  Receipt Date: 20200822
  Transmission Date: 20201102
  Serious: Yes (Hospitalization)
  Sender: FDA-Public Use
  Company Number: US-ACTELION-A-NJ2020-202717

PATIENT
  Sex: Female
  Weight: 51.7 kg

DRUGS (4)
  1. UPTRAVI [Suspect]
     Active Substance: SELEXIPAG
     Indication: PULMONARY HYPERTENSION
     Dosage: 1000 MCG, BID
     Route: 048
  2. UPTRAVI [Suspect]
     Active Substance: SELEXIPAG
     Dosage: 1200 MCG, BID
     Route: 048
  3. TADALAFIL. [Concomitant]
     Active Substance: TADALAFIL
  4. LETAIRIS [Concomitant]
     Active Substance: AMBRISENTAN
     Dosage: UNK
     Dates: start: 2020

REACTIONS (12)
  - Pneumonia aspiration [Unknown]
  - Abdominal discomfort [Unknown]
  - Hypotension [Unknown]
  - Pericardial effusion [Unknown]
  - Swelling [Unknown]
  - Mood altered [Unknown]
  - Weight decreased [Unknown]
  - Decreased appetite [Unknown]
  - Hostility [Unknown]
  - Oxygen saturation decreased [Unknown]
  - Diarrhoea [Unknown]
  - Nausea [Recovering/Resolving]
